FAERS Safety Report 10379962 (Version 1)
Quarter: 2014Q3

REPORT INFORMATION
  Report Type: Spontaneous
  Country: US (occurrence: US)
  Receive Date: 20140813
  Receipt Date: 20140813
  Transmission Date: 20150326
  Serious: Yes (Other)
  Sender: FDA-Public Use
  Company Number: US-AMGEN INC.-USASP2014061076

PATIENT
  Age: 43 Year
  Sex: Female

DRUGS (4)
  1. PREDNISONE. [Concomitant]
     Active Substance: PREDNISONE
     Dosage: UNK
  2. ISONIAZID. [Concomitant]
     Active Substance: ISONIAZID
     Dosage: 300 MG, DAILY
  3. ENBREL [Suspect]
     Active Substance: ETANERCEPT
     Indication: RHEUMATOID ARTHRITIS
     Dosage: 50 MG, QWK
     Route: 065
     Dates: start: 20140428
  4. VITAMIN B 6 [Concomitant]
     Dosage: UNK, DAILY

REACTIONS (7)
  - Chest discomfort [Not Recovered/Not Resolved]
  - Vaginal infection [Not Recovered/Not Resolved]
  - Tuberculosis [Not Recovered/Not Resolved]
  - Dry throat [Not Recovered/Not Resolved]
  - Headache [Not Recovered/Not Resolved]
  - Muscle spasms [Not Recovered/Not Resolved]
  - Vulvovaginal pruritus [Not Recovered/Not Resolved]

NARRATIVE: CASE EVENT DATE: 20140428
